FAERS Safety Report 12866471 (Version 4)
Quarter: 2018Q4

REPORT INFORMATION
  Report Type: Report from Study
  Country: US (occurrence: US)
  Receive Date: 20161020
  Receipt Date: 20181203
  Transmission Date: 20190204
  Serious: Yes (Hospitalization, Other)
  Sender: FDA-Public Use
  Company Number: US-SA-2016SA107301

PATIENT
  Age: 36 Year
  Sex: Female

DRUGS (8)
  1. TERIFLUNOMIDE. [Suspect]
     Active Substance: TERIFLUNOMIDE
     Indication: MULTIPLE SCLEROSIS
     Dosage: 14 MG, QD
     Route: 048
     Dates: start: 20160318, end: 20160601
  2. BETASERON [Suspect]
     Active Substance: INTERFERON BETA-1B
     Dosage: 1 DF
     Route: 042
  3. OCREVUS [Suspect]
     Active Substance: OCRELIZUMAB
     Dosage: UNK
     Dates: start: 201801, end: 201801
  4. BACLOFEN. [Concomitant]
     Active Substance: BACLOFEN
     Dosage: UNK
  5. TYSABRI [Suspect]
     Active Substance: NATALIZUMAB
  6. PLEGRIDY [Suspect]
     Active Substance: PEGINTERFERON BETA-1A
     Dosage: UNK
  7. TERIFLUNOMIDE. [Suspect]
     Active Substance: TERIFLUNOMIDE
     Dosage: 14 MG, QD
     Route: 048
     Dates: start: 20160404, end: 20160601
  8. SOMA [Concomitant]
     Active Substance: CARISOPRODOL
     Dosage: UNK

REACTIONS (19)
  - Influenza like illness [Not Recovered/Not Resolved]
  - Adverse drug reaction [Recovered/Resolved]
  - Walking disability [Not Recovered/Not Resolved]
  - Pyrexia [Not Recovered/Not Resolved]
  - Unevaluable event [Not Recovered/Not Resolved]
  - Sepsis [Recovered/Resolved]
  - Weight decreased [Recovered/Resolved]
  - Hypersensitivity [Recovered/Resolved]
  - Impaired work ability [Not Recovered/Not Resolved]
  - Anxiety [Unknown]
  - Disability [Not Recovered/Not Resolved]
  - Alopecia [Recovering/Resolving]
  - Migraine [Not Recovered/Not Resolved]
  - Subclavian vein thrombosis [Recovered/Resolved]
  - Cough [Not Recovered/Not Resolved]
  - Impaired driving ability [Not Recovered/Not Resolved]
  - Malaise [Recovered/Resolved]
  - Vomiting projectile [Recovered/Resolved]
  - Stress [Not Recovered/Not Resolved]

NARRATIVE: CASE EVENT DATE: 201604
